FAERS Safety Report 6035379-0 (Version None)
Quarter: 2009Q1

REPORT INFORMATION
  Report Type: 
  Country: None (occurrence: None)
  Receive Date: 20090112
  Receipt Date: 20090112
  Transmission Date: 20090719
  Serious: Yes (Hospitalization)
  Sender: FDA-Public Use
  Company Number: None

PATIENT
  Sex: Male

DRUGS (1)
  1. HUMATE-P [Suspect]
     Indication: TONSILLECTOMY
     Dosage: 34 UNTIS PRIOR TO OR IVP ONLY 1/2 DOSE ADMINISTERED PRIOR TO REACTION GRADUALLY
     Dates: start: 20081218

REACTIONS (7)
  - CONVULSION [None]
  - CYANOSIS [None]
  - DYSKINESIA [None]
  - LOSS OF CONSCIOUSNESS [None]
  - MUSCULOSKELETAL STIFFNESS [None]
  - NAUSEA [None]
  - VISION BLURRED [None]
